FAERS Safety Report 6988363-4 (Version None)
Quarter: 2010Q3

REPORT INFORMATION
  Report Type: 
  Country: None (occurrence: None)
  Receive Date: 20100916
  Receipt Date: 20100908
  Transmission Date: 20110219
  Serious: Yes (Hospitalization)
  Sender: FDA-Public Use
  Company Number: BR-ABBOTT-09P-020-0608395-00

PATIENT
  Sex: Female
  Weight: 65 kg

DRUGS (14)
  1. HUMIRA [Suspect]
     Indication: RHEUMATOID ARTHRITIS
     Route: 058
     Dates: start: 20060101, end: 20091020
  2. HUMIRA [Suspect]
     Dates: start: 20100101
  3. ARTROLIVE [Concomitant]
     Indication: CHONDROPATHY
     Dosage: 500/400 MILLIGRAMS
     Route: 048
  4. BONALEN [Concomitant]
     Indication: OSTEOPOROSIS PROPHYLAXIS
     Route: 048
  5. OSCAL D [Concomitant]
     Indication: BLOOD CALCIUM DECREASED
     Route: 048
  6. VITAMIN D, COLECALCIFEROL [Concomitant]
     Indication: VITAMIN D DEFICIENCY
     Route: 048
  7. VYTORIN [Concomitant]
     Indication: BLOOD CHOLESTEROL ABNORMAL
     Dosage: 10MG/10MG
     Route: 048
  8. CEWIN [Concomitant]
     Indication: VITAMIN C
     Route: 048
     Dates: end: 20091001
  9. AMBROXOL [Concomitant]
     Indication: PRODUCTIVE COUGH
     Dosage: 30MG/5ML-5ML EVERY 8 HOURS
     Dates: end: 20091018
  10. BENEGRIP [Concomitant]
     Indication: PAIN
     Route: 048
     Dates: end: 20091019
  11. BENEGRIP [Concomitant]
     Indication: PYREXIA
  12. ALIVIUM [Concomitant]
     Indication: PAIN
     Route: 048
     Dates: start: 20091019, end: 20091021
  13. ALIVIUM [Concomitant]
     Indication: PYREXIA
  14. FLUOXETINE [Concomitant]
     Indication: ANTIDEPRESSANT THERAPY
     Route: 048
     Dates: start: 20091004

REACTIONS (12)
  - DIZZINESS [None]
  - HEADACHE [None]
  - INFECTION [None]
  - INFLUENZA [None]
  - OSTEOPENIA [None]
  - PHARYNGEAL ABSCESS [None]
  - PHARYNGITIS [None]
  - PNEUMONIA [None]
  - RHINITIS [None]
  - SINUSITIS [None]
  - URINE ANALYSIS ABNORMAL [None]
  - WEIGHT INCREASED [None]
